FAERS Safety Report 12180485 (Version 1)
Quarter: 2016Q1

REPORT INFORMATION
  Report Type: Spontaneous
  Country: US (occurrence: None)
  Receive Date: 20160314
  Receipt Date: 20160314
  Transmission Date: 20160526
  Serious: No
  Sender: FDA-Public Use
  Company Number: None

PATIENT
  Age: 48 Year
  Sex: Female
  Weight: 111.13 kg

DRUGS (13)
  1. METFORMIN [Concomitant]
     Active Substance: METFORMIN HYDROCHLORIDE
  2. PREVACID [Concomitant]
     Active Substance: LANSOPRAZOLE
  3. TRAMADOL. [Concomitant]
     Active Substance: TRAMADOL
  4. GABAPENTIN. [Concomitant]
     Active Substance: GABAPENTIN
  5. HCTZ [Concomitant]
     Active Substance: HYDROCHLOROTHIAZIDE
  6. ALLEGRA [Concomitant]
     Active Substance: FEXOFENADINE HYDROCHLORIDE
  7. LOW DOSE ASPIRIN [Concomitant]
     Active Substance: ASPIRIN
  8. IBUPROFEN. [Concomitant]
     Active Substance: IBUPROFEN
  9. ZEBETA [Concomitant]
     Active Substance: BISOPROLOL FUMARATE
  10. PHENERGAN [Concomitant]
     Active Substance: PROMETHAZINE HYDROCHLORIDE
  11. TYLENOL [Concomitant]
     Active Substance: ACETAMINOPHEN
  12. BACLOFEN 10MG IVAX PHARMACEUTICALS [Suspect]
     Active Substance: BACLOFEN
     Indication: MYALGIA
     Route: 048
     Dates: start: 20160226, end: 20160311
  13. FIORICET [Concomitant]
     Active Substance: ACETAMINOPHEN\BUTALBITAL\CAFFEINE

REACTIONS (19)
  - Initial insomnia [None]
  - Pain [None]
  - Decreased appetite [None]
  - Middle insomnia [None]
  - Influenza like illness [None]
  - Irritability [None]
  - Respiratory depression [None]
  - Chills [None]
  - Nausea [None]
  - Constipation [None]
  - Hyperhidrosis [None]
  - Metabolic disorder [None]
  - Tremor [None]
  - Headache [None]
  - Somnolence [None]
  - Dizziness [None]
  - Fatigue [None]
  - Asthenia [None]
  - Oedema peripheral [None]

NARRATIVE: CASE EVENT DATE: 20160311
